FAERS Safety Report 18791682 (Version 1)
Quarter: 2021Q1

REPORT INFORMATION
  Report Type: Report from Study
  Country: DE (occurrence: DE)
  Receive Date: 20210127
  Receipt Date: 20210127
  Transmission Date: 20210419
  Serious: Yes (Hospitalization)
  Sender: FDA-Public Use
  Company Number: DE-EMD SERONO-9169825

PATIENT
  Age: 13 Year
  Sex: Male
  Weight: 34 kg

DRUGS (2)
  1. SAIZEN [Suspect]
     Active Substance: SOMATROPIN
     Route: 058
     Dates: start: 20200526
  2. SAIZEN [Suspect]
     Active Substance: SOMATROPIN
     Indication: GROWTH HORMONE DEFICIENCY
     Dosage: 0.50 (UNITS UNSPECIFIED)
     Route: 058
     Dates: start: 20140409

REACTIONS (1)
  - Craniopharyngioma [Recovered/Resolved]

NARRATIVE: CASE EVENT DATE: 20200508
